FAERS Safety Report 5066475-2 (Version None)
Quarter: 2006Q3

REPORT INFORMATION
  Report Type: 
  Country: None (occurrence: None)
  Receive Date: 20060717
  Receipt Date: 20050511
  Transmission Date: 20061208
  Serious: Yes (Death, Other)
  Sender: FDA-Public Use
  Company Number: 2005-05-0685

PATIENT
  Sex: Male

DRUGS (10)
  1. INTEGRILIN [Suspect]
     Indication: PERCUTANEOUS CORONARY INTERVENTION
     Dosage: 3.4-9 MG INTRAVENOUS
     Route: 042
     Dates: start: 20050504, end: 20050504
  2. ASPIRIN [Suspect]
     Dosage: 325 MG ORAL
     Route: 048
     Dates: start: 20050504
  3. HEPARIN [Suspect]
     Dosage: 4500 U/HR INTRAVENOUS
     Route: 042
     Dates: start: 20050504
  4. CLOPIDOGREL [Suspect]
     Dosage: 75 MG ORAL
     Route: 048
     Dates: start: 20050504
  5. BENADRYL [Concomitant]
  6. VALIUM [Concomitant]
  7. FENTANYL [Concomitant]
  8. NITROGLYCERIN [Concomitant]
  9. ALBUTEROL SPIROS [Concomitant]
  10. ATROVENT [Concomitant]

REACTIONS (10)
  - CARDIAC ARREST [None]
  - CHRONIC OBSTRUCTIVE PULMONARY DISEASE [None]
  - ELECTROCARDIOGRAM ST SEGMENT ABNORMAL [None]
  - GASTROINTESTINAL HAEMORRHAGE [None]
  - HAEMATEMESIS [None]
  - HAEMORRHAGE [None]
  - MELAENA [None]
  - RESPIRATORY DISTRESS [None]
  - SHOCK [None]
  - UNEVALUABLE EVENT [None]
